FAERS Safety Report 8539793 (Version 3)
Quarter: 2013Q4

REPORT INFORMATION
  Report Type: Spontaneous
  Country: US (occurrence: US)
  Receive Date: 20120502
  Receipt Date: 20131213
  Transmission Date: 20140711
  Serious: Yes (Hospitalization, Other)
  Sender: FDA-Public Use
  Company Number: US-BAYER-2012-041884

PATIENT
  Age: 21 Year
  Sex: Female

DRUGS (8)
  1. YAZ [Suspect]
     Indication: CONTRACEPTION
     Dosage: UNK
     Dates: start: 20091210, end: 20100423
  2. SULFAMETHOXAZOLE W/TRIMETHOPRIM [Concomitant]
     Dosage: 800-160MG
     Dates: start: 20100421
  3. CIPRODEX [Concomitant]
     Dosage: .3 -.1%
     Route: 031
     Dates: start: 20100707
  4. PRENATAL VITAMINS [Concomitant]
     Route: 048
  5. TYLENOL [PARACETAMOL] [Concomitant]
     Route: 048
  6. COLACE [Concomitant]
     Route: 048
  7. GINKGO BILOBA [Concomitant]
     Route: 048
  8. CINNAMON [Concomitant]
     Route: 048

REACTIONS (8)
  - Gallbladder disorder [None]
  - Cholecystitis chronic [None]
  - Biliary dyskinesia [None]
  - Injury [None]
  - Pain [None]
  - Abdominal pain [None]
  - Nausea [None]
  - Vomiting [None]
